FAERS Safety Report 5763783-4 (Version None)
Quarter: 2008Q2

REPORT INFORMATION
  Report Type: 
  Country: None (occurrence: None)
  Receive Date: 20080604
  Receipt Date: 20080604
  Transmission Date: 20081010
  Serious: Yes (Hospitalization)
  Sender: FDA-Public Use
  Company Number: None

PATIENT
  Sex: Female
  Weight: 14.2 kg

DRUGS (5)
  1. MYLOTARG [Suspect]
  2. ETOPOSIDE [Suspect]
     Dosage: 175 MG
  3. DAUNORUBICIN HCL [Suspect]
     Dosage: 72 MG
  4. CYTARABINE [Suspect]
     Dosage: 940 MG
  5. HEPARIN [Concomitant]

REACTIONS (11)
  - ACUTE RESPIRATORY FAILURE [None]
  - ASPIRATION [None]
  - BRADYCARDIA [None]
  - CEREBELLAR HAEMORRHAGE [None]
  - ELECTROENCEPHALOGRAM ABNORMAL [None]
  - HAEMODIALYSIS [None]
  - HAEMODYNAMIC INSTABILITY [None]
  - HYPOTENSION [None]
  - PULMONARY HAEMORRHAGE [None]
  - REFUSAL OF TREATMENT BY RELATIVE [None]
  - RENAL FAILURE [None]
